FAERS Safety Report 8184948-0 (Version None)
Quarter: 2012Q1

REPORT INFORMATION
  Report Type: 
  Country: None (occurrence: None)
  Receive Date: 20120305
  Receipt Date: 20120224
  Transmission Date: 20120608
  Serious: Yes (Other)
  Sender: FDA-Public Use
  Company Number: IT-GLAXOSMITHKLINE-B0776799A

PATIENT
  Age: 41 Year
  Sex: Male

DRUGS (2)
  1. TOPAMAX [Suspect]
     Indication: PRODUCT USED FOR UNKNOWN INDICATION
     Dosage: 900MG PER DAY
     Route: 048
     Dates: start: 20100807, end: 20100807
  2. PAROXETINE HYDROCHLORIDE [Suspect]
     Indication: PRODUCT USED FOR UNKNOWN INDICATION
     Route: 065
     Dates: start: 20100807, end: 20100807

REACTIONS (2)
  - OVERDOSE [None]
  - SELF INJURIOUS BEHAVIOUR [None]
